FAERS Safety Report 14269011 (Version 1)
Quarter: 2017Q4

REPORT INFORMATION
  Report Type: Spontaneous
  Country: US (occurrence: US)
  Receive Date: 20171211
  Receipt Date: 20171211
  Transmission Date: 20180321
  Serious: No
  Sender: FDA-Public Use
  Company Number: US-PFIZER INC-2017514576

PATIENT
  Age: 34 Year
  Sex: Female

DRUGS (1)
  1. SUTENT [Suspect]
     Active Substance: SUNITINIB MALATE
     Indication: INTRAOCULAR MELANOMA
     Dosage: 25 MG, 1X/DAY, (TAKE ONE CAPSULE BY MOUTH ONE TIME DAILY)
     Route: 048
     Dates: start: 20171128

REACTIONS (3)
  - Rash macular [Unknown]
  - Pruritus [Unknown]
  - Product use in unapproved indication [Unknown]

NARRATIVE: CASE EVENT DATE: 20171206
